FAERS Safety Report 7307593-5 (Version None)
Quarter: 2011Q1

REPORT INFORMATION
  Report Type: 
  Country: None (occurrence: None)
  Receive Date: 20110223
  Receipt Date: 20110218
  Transmission Date: 20110831
  Serious: Yes (Death, Life-Threatening, Hospitalization)
  Sender: FDA-Public Use
  Company Number: CA-SANOFI-AVENTIS-2011SA001297

PATIENT
  Age: 65 Year
  Sex: Female

DRUGS (4)
  1. TAXOTERE [Suspect]
     Route: 041
     Dates: start: 20101217, end: 20101217
  2. CYCLOPHOSPHAMIDE [Concomitant]
  3. 5-FU [Concomitant]
  4. EPIRUBICIN [Concomitant]

REACTIONS (9)
  - DIARRHOEA [None]
  - PNEUMONIA [None]
  - COUGH [None]
  - NAUSEA [None]
  - RESPIRATORY FAILURE [None]
  - DEATH [None]
  - PYREXIA [None]
  - LOBAR PNEUMONIA [None]
  - HYPERHIDROSIS [None]
